FAERS Safety Report 4440323-3 (Version None)
Quarter: 2004Q3

REPORT INFORMATION
  Report Type: 
  Country: None (occurrence: None)
  Receive Date: 20040831
  Receipt Date: 20040817
  Transmission Date: 20050211
  Serious: Yes (Hospitalization, Disabling)
  Sender: FDA-Public Use
  Company Number: 2004AP02910

PATIENT
  Age: 76 Year
  Sex: Male

DRUGS (3)
  1. IRESSA [Suspect]
     Indication: LUNG ADENOCARCINOMA
     Dosage: 250 MG DAILY PO
     Route: 048
     Dates: start: 20040407, end: 20040516
  2. IRESSA [Suspect]
     Indication: NON-SMALL CELL LUNG CANCER
     Dosage: 250 MG DAILY PO
     Route: 048
     Dates: start: 20040407, end: 20040516
  3. RADIOTHERAPY [Concomitant]

REACTIONS (7)
  - ASCITES [None]
  - BLOOD POTASSIUM INCREASED [None]
  - HAEMODIALYSIS [None]
  - HYDRONEPHROSIS [None]
  - PLEURAL EFFUSION [None]
  - RENAL IMPAIRMENT [None]
  - RETROPERITONEAL FIBROSIS [None]
